FAERS Safety Report 10018136 (Version 1)
Quarter: 2014Q1

REPORT INFORMATION
  Report Type: Spontaneous
  Country: US (occurrence: US)
  Receive Date: 20140318
  Receipt Date: 20140318
  Transmission Date: 20141002
  Serious: Yes (Other)
  Sender: FDA-Public Use
  Company Number: US-BRISTOL-MYERS SQUIBB COMPANY-19033851

PATIENT
  Age: 59 Year
  Sex: Female

DRUGS (1)
  1. ERBITUX SOLN FOR INF [Suspect]
     Dosage: 1DF=5CC
     Dates: start: 20130619

REACTIONS (1)
  - Infusion related reaction [Recovered/Resolved]
